FAERS Safety Report 10244003 (Version 2)
Quarter: 2014Q2

REPORT INFORMATION
  Report Type: Spontaneous
  Country: JP (occurrence: JP)
  Receive Date: 20140618
  Receipt Date: 20140630
  Transmission Date: 20141212
  Serious: Yes (Death, Other)
  Sender: FDA-Public Use
  Company Number: JP-JNJFOC-20140610148

PATIENT
  Age: 94 Year
  Sex: Male

DRUGS (1)
  1. ITRIZOLE [Suspect]
     Indication: ASPERGILLUS INFECTION
     Route: 048

REACTIONS (2)
  - Renal failure [Not Recovered/Not Resolved]
  - Death [Fatal]
